FAERS Safety Report 5143190-8 (Version None)
Quarter: 2006Q4

REPORT INFORMATION
  Report Type: 
  Country: None (occurrence: None)
  Receive Date: 20061030
  Receipt Date: 20061012
  Transmission Date: 20070319
  Serious: Yes (Other)
  Sender: FDA-Public Use
  Company Number: 2006056400

PATIENT
  Age: 15 Year
  Sex: Female
  Weight: 43 kg

DRUGS (7)
  1. SOLU-MEDROL [Suspect]
     Indication: GLOMERULONEPHRITIS PROLIFERATIVE
     Dosage: 500 MG (500 MG, 1 IN 1 D), INTRAVENOUS
     Route: 042
     Dates: start: 20050810, end: 20050812
  2. PREDNISOLONE [Suspect]
     Indication: ILL-DEFINED DISORDER
     Dosage: 30 MG (15 MG, 1 IN 2 D), ORAL
     Route: 048
     Dates: start: 20050813
  3. PERSANTIN [Concomitant]
  4. HEPARIN [Concomitant]
  5. FAMOTIDINE [Concomitant]
  6. SELBEX (TEPRENONE) [Concomitant]
  7. PRAVASTATIN [Concomitant]

REACTIONS (3)
  - HYPERCHOLESTEROLAEMIA [None]
  - HYPOALBUMINAEMIA [None]
  - PROTEINURIA [None]
